FAERS Safety Report 7516178-7 (Version None)
Quarter: 2011Q2

REPORT INFORMATION
  Report Type: 
  Country: None (occurrence: None)
  Receive Date: 20110601
  Receipt Date: 20110517
  Transmission Date: 20111010
  Serious: Yes (Hospitalization)
  Sender: FDA-Public Use
  Company Number: CA-JNJFOC-20110508427

PATIENT
  Sex: Male
  Weight: 89 kg

DRUGS (4)
  1. REMICADE [Suspect]
     Dosage: 12TH INFUSION
     Route: 042
     Dates: start: 20110221
  2. PENTASA [Concomitant]
  3. REMICADE [Suspect]
     Indication: CROHN'S DISEASE
     Route: 042
     Dates: start: 20100804
  4. SOLU-CORTEF [Concomitant]
     Indication: PREMEDICATION

REACTIONS (2)
  - GASTRIC INFECTION [None]
  - COLONIC STENOSIS [None]
